FAERS Safety Report 25365564 (Version 1)
Quarter: 2025Q2

REPORT INFORMATION
  Report Type: Spontaneous
  Country: DE (occurrence: DE)
  Receive Date: 20250527
  Receipt Date: 20250527
  Transmission Date: 20250717
  Serious: Yes (Other)
  Sender: JOHNSON AND JOHNSON
  Company Number: DE-BAYER-2025A070413

PATIENT
  Age: 86 Year
  Sex: Male

DRUGS (2)
  1. XARELTO [Suspect]
     Active Substance: RIVAROXABAN
     Indication: Varicose vein
     Route: 048
  2. XARELTO [Suspect]
     Active Substance: RIVAROXABAN
     Indication: Thrombosis

REACTIONS (4)
  - Hypotension [Unknown]
  - Prostatic disorder [Unknown]
  - Fatigue [Unknown]
  - Product use in unapproved indication [Unknown]
